FAERS Safety Report 6571608-2 (Version None)
Quarter: 2010Q1

REPORT INFORMATION
  Report Type: 
  Country: None (occurrence: None)
  Receive Date: 20100205
  Receipt Date: 20100126
  Transmission Date: 20100710
  Serious: Yes (Hospitalization)
  Sender: FDA-Public Use
  Company Number: TR-MEDIMMUNE-MEDI-0010421

PATIENT
  Sex: Male
  Weight: 3.5 kg

DRUGS (1)
  1. SYNAGIS [Suspect]
     Indication: NEONATAL RESPIRATORY DISTRESS SYNDROME
     Route: 030
     Dates: start: 20100118

REACTIONS (4)
  - ASTHENIA [None]
  - CYANOSIS [None]
  - DYSPNOEA [None]
  - INFECTION [None]
